FAERS Safety Report 9038946 (Version 1)
Quarter: 2013Q1

REPORT INFORMATION
  Report Type: Report from Study
  Country: US (occurrence: US)
  Receive Date: 20130129
  Receipt Date: 20130129
  Transmission Date: 20140127
  Serious: No
  Sender: FDA-Public Use
  Company Number: US-ABBOTT-12P-163-0931218-00

PATIENT
  Sex: Female
  Weight: 107.6 kg

DRUGS (6)
  1. HUMIRA 40 MG/0.8 ML PEN [Suspect]
     Indication: RHEUMATOID ARTHRITIS
     Dates: start: 2008
  2. METFORMIN [Concomitant]
     Indication: DIABETES MELLITUS
  3. EXFORGE [Concomitant]
     Indication: HYPERTENSION
  4. LEVOTHYROXINE [Concomitant]
     Indication: HYPOTHYROIDISM
  5. GABAPENTIN [Concomitant]
     Indication: NEUROPATHY PERIPHERAL
  6. PRILOSEC [Concomitant]
     Indication: GASTROOESOPHAGEAL REFLUX DISEASE

REACTIONS (2)
  - Blepharospasm [Not Recovered/Not Resolved]
  - Muscle spasms [Not Recovered/Not Resolved]
